FAERS Safety Report 7033434-X (Version None)
Quarter: 2010Q4

REPORT INFORMATION
  Report Type: 
  Country: None (occurrence: None)
  Receive Date: 20101007
  Receipt Date: 20100930
  Transmission Date: 20110411
  Serious: Yes (Hospitalization)
  Sender: FDA-Public Use
  Company Number: CHPA2010US15497

PATIENT
  Age: 82 Year
  Sex: Male
  Weight: 86.168 kg

DRUGS (1)
  1. NODOZ (NCH) [Suspect]
     Indication: DEPRESSED LEVEL OF CONSCIOUSNESS
     Dosage: ONE OR TWO CAPLETS DAILY, 5 DAYS A WEEK
     Route: 048
     Dates: start: 20100301, end: 20101001

REACTIONS (3)
  - HEART RATE IRREGULAR [None]
  - HYPERHIDROSIS [None]
  - SYNCOPE [None]
